FAERS Safety Report 5377492-7 (Version None)
Quarter: 2007Q3

REPORT INFORMATION
  Report Type: 
  Country: None (occurrence: None)
  Receive Date: 20070703
  Receipt Date: 20070625
  Transmission Date: 20080115
  Serious: Yes (Hospitalization)
  Sender: FDA-Public Use
  Company Number: IE-ROCHE-494874

PATIENT
  Age: 58 Year
  Sex: Female

DRUGS (5)
  1. BONIVA [Suspect]
     Indication: OSTEOPOROSIS
     Route: 048
     Dates: start: 20060701, end: 20070401
  2. LIPITOR [Concomitant]
     Indication: BLOOD CHOLESTEROL ABNORMAL
     Route: 048
     Dates: end: 20070401
  3. FOSAMAX [Concomitant]
     Indication: OSTEOPOROSIS
     Route: 048
     Dates: start: 20020101, end: 20060701
  4. ZOTON [Concomitant]
     Indication: ABDOMINAL DISCOMFORT
     Route: 048
     Dates: start: 20070402, end: 20070401
  5. AULIN [Concomitant]
     Indication: ANTIINFLAMMATORY THERAPY
     Dosage: DRUG STOPPED AFTER ONE MONTH.RESTARTED ON 14 SEPTEMBER 2005 FOR 1 MONTH.
     Route: 048
     Dates: start: 20020101, end: 20051014

REACTIONS (1)
  - PANCREATITIS ACUTE [None]
